FAERS Safety Report 6190851-8 (Version None)
Quarter: 2009Q2

REPORT INFORMATION
  Report Type: 
  Country: None (occurrence: None)
  Receive Date: 20090514
  Receipt Date: 20090506
  Transmission Date: 20091009
  Serious: Yes (Hospitalization, Other)
  Sender: FDA-Public Use
  Company Number: BE-ABBOTT-09P-013-0572074-00

PATIENT
  Sex: Male

DRUGS (10)
  1. CLARITHROMYCIN [Suspect]
     Indication: COUGH
     Dates: start: 20090427
  2. CLARITHROMYCIN [Interacting]
     Indication: MYCOPLASMA INFECTION
  3. PRIADEL [Interacting]
     Indication: DRUG USE FOR UNKNOWN INDICATION
     Dosage: ONE TABLET DAILY
     Dates: start: 20090429
  4. PRIADEL [Interacting]
     Dosage: 1.5 TABLETS DAILY
     Dates: start: 20090426, end: 20090428
  5. PRIADEL [Interacting]
     Dosage: ONE TABLET DAILY
     Dates: end: 20090425
  6. VERAPAMIL [Concomitant]
     Indication: HEADACHE
  7. LYSOMUCIL [Concomitant]
     Indication: COUGH
     Dates: start: 20090427
  8. LYSOMUCIL [Concomitant]
     Indication: MYCOPLASMA INFECTION
  9. LEVOTUSS [Concomitant]
     Indication: COUGH
     Dates: start: 20090427
  10. LEVOTUSS [Concomitant]
     Indication: MYCOPLASMA INFECTION

REACTIONS (2)
  - DRUG INTERACTION [None]
  - HALLUCINATION [None]
